FAERS Safety Report 6872203-8 (Version None)
Quarter: 2010Q2

REPORT INFORMATION
  Report Type: 
  Country: None (occurrence: None)
  Receive Date: 20100528
  Receipt Date: 20100219
  Transmission Date: 20101027
  Serious: No
  Sender: FDA-Public Use
  Company Number: 2010022350

PATIENT
  Age: 84 Year
  Sex: Male
  Weight: 73.5 kg

DRUGS (8)
  1. TOVIAZ (FESOTERODINE) MODIFIED-RELEASE TABLET [Suspect]
     Indication: HYPERTONIC BLADDER
     Dosage: 4 MG, 1X/DAY, ORAL
     Route: 048
     Dates: start: 20100204
  2. ALTACE [Concomitant]
  3. CRESTOR [Concomitant]
  4. OMEPRAZOLE [Concomitant]
  5. SYNTHROID [Concomitant]
  6. MULTIVITAMINS (ASCORBIC ACID, ERGOCALCIFEROL, FOLIC ACID, NICOTINAMIDE [Concomitant]
  7. COENZYME Q10 [Concomitant]
  8. VITAMIN D [Concomitant]

REACTIONS (2)
  - DRUG INEFFECTIVE [None]
  - POLLAKIURIA [None]
